FAERS Safety Report 15376360 (Version 7)
Quarter: 2025Q4

REPORT INFORMATION
  Report Type: Report from Study
  Country: US (occurrence: US)
  Receive Date: 20180912
  Receipt Date: 20251230
  Transmission Date: 20260117
  Serious: Yes (Other)
  Sender: NOVARTIS
  Company Number: PHEH2018US037946

PATIENT
  Sex: Female

DRUGS (2)
  1. COSENTYX [Suspect]
     Active Substance: SECUKINUMAB
     Indication: Psoriasis
     Dosage: 300 MG, QMO (*INJECTION NOS)
     Route: 050
     Dates: start: 20180405
  2. TAR [Concomitant]
     Active Substance: TAR
     Indication: Product used for unknown indication
     Dosage: UNK (*TOPICAL)
     Route: 065

REACTIONS (7)
  - Pneumonia [Unknown]
  - Bronchitis [Unknown]
  - Urinary tract infection [Unknown]
  - Oral herpes [Unknown]
  - Vulvovaginal candidiasis [Unknown]
  - Pharyngitis [Unknown]
  - Oropharyngeal candidiasis [Unknown]

NARRATIVE: CASE EVENT DATE: 20190301
